FAERS Safety Report 4331503-6 (Version None)
Quarter: 2004Q2

REPORT INFORMATION
  Report Type: 
  Country: None (occurrence: None)
  Receive Date: 20040405
  Receipt Date: 20031016
  Transmission Date: 20050107
  Serious: Yes (Hospitalization)
  Sender: FDA-Public Use
  Company Number: PHRM2003FR02759

PATIENT
  Age: 54 Year
  Sex: Male
  Weight: 80 kg

DRUGS (9)
  1. LAMPRENE [Suspect]
     Dosage: 3 CAPS/DAY
     Route: 048
     Dates: start: 20020915, end: 20030903
  2. ZIAGEN [Suspect]
     Indication: HIV INFECTION
     Dosage: 1 DF, BID
     Route: 048
     Dates: start: 20020605, end: 20030903
  3. BACTRIM [Concomitant]
     Route: 065
  4. RIFABUTIN [Concomitant]
     Route: 065
  5. MYAMBUTOL [Concomitant]
     Route: 065
  6. ZECLAR [Concomitant]
     Route: 065
  7. CIPROFLOXACIN HCL [Concomitant]
     Route: 065
  8. EPIVIR [Concomitant]
     Route: 065
  9. KALETRA [Concomitant]
     Dosage: UNK, UNK
     Route: 065

REACTIONS (9)
  - ASTHENIA [None]
  - CHEST DISCOMFORT [None]
  - DYSPNOEA [None]
  - HYPOXIA [None]
  - INTERSTITIAL LUNG DISEASE [None]
  - NOCTURNAL DYSPNOEA [None]
  - PULMONARY FIBROSIS [None]
  - PYREXIA [None]
  - WEIGHT DECREASED [None]
